FAERS Safety Report 4478370-8 (Version None)
Quarter: 2004Q4

REPORT INFORMATION
  Report Type: 
  Country: None (occurrence: None)
  Receive Date: 20041018
  Receipt Date: 20041018
  Transmission Date: 20050328
  Serious: Yes (Hospitalization)
  Sender: FDA-Public Use
  Company Number: None

PATIENT
  Age: 47 Year
  Sex: Male
  Weight: 80.5 kg

DRUGS (1)
  1. IMIPENEM  1000 MG [Suspect]
     Dosage: 1000 MG  Q12 HOURS INTRAVENOU
     Route: 042
     Dates: start: 20040930, end: 20041002

REACTIONS (3)
  - PRURITUS [None]
  - RASH ERYTHEMATOUS [None]
  - RASH MACULAR [None]
